FAERS Safety Report 4614041-2 (Version None)
Quarter: 2005Q1

REPORT INFORMATION
  Report Type: 
  Country: None (occurrence: None)
  Receive Date: 20050316
  Receipt Date: 20050225
  Transmission Date: 20050727
  Serious: Yes (Hospitalization)
  Sender: FDA-Public Use
  Company Number: GBS050116481

PATIENT
  Age: 13 Year
  Sex: Female
  Weight: 49 kg

DRUGS (6)
  1. ZYPREXA [Suspect]
     Indication: MANIA
     Dosage: 15 MG DAY
     Dates: start: 20050106, end: 20050114
  2. ZYPREXA [Suspect]
     Indication: PSYCHOTIC DISORDER
     Dosage: 15 MG DAY
     Dates: start: 20050106, end: 20050114
  3. VALPROATE SODIUM [Concomitant]
  4. DIAZEPAM [Concomitant]
  5. LORAZEPAM [Concomitant]
  6. PROMETHAZINE [Concomitant]

REACTIONS (5)
  - BLOOD CREATINE PHOSPHOKINASE INCREASED [None]
  - HEART RATE INCREASED [None]
  - PYREXIA [None]
  - VIRAL INFECTION [None]
  - WHITE BLOOD CELL COUNT INCREASED [None]
